FAERS Safety Report 8008181-8 (Version None)
Quarter: 2011Q4

REPORT INFORMATION
  Report Type: 
  Country: None (occurrence: None)
  Receive Date: 20111222
  Receipt Date: 20111222
  Transmission Date: 20120403
  Serious: Yes (Other)
  Sender: FDA-Public Use
  Company Number: None

PATIENT
  Sex: Male
  Weight: 90.7194 kg

DRUGS (1)
  1. DIPHENHYDRAMINE HCL [Suspect]
     Indication: INSOMNIA
     Dosage: 1 CAP AT BEDTIME BY MOUTH
     Route: 048
     Dates: start: 20111001, end: 20111101

REACTIONS (2)
  - TOXICITY TO VARIOUS AGENTS [None]
  - PRODUCT FORMULATION ISSUE [None]
